FAERS Safety Report 6709866-3 (Version None)
Quarter: 2010Q2

REPORT INFORMATION
  Report Type: 
  Country: None (occurrence: None)
  Receive Date: 20100503
  Receipt Date: 20100503
  Transmission Date: 20101027
  Serious: No
  Sender: FDA-Public Use
  Company Number: None

PATIENT
  Age: 20 Month
  Sex: Male

DRUGS (2)
  1. CHILDREN'S TYLENOL INFANT [Suspect]
  2. CHILDREN'S MOTRIN [Suspect]

REACTIONS (5)
  - CRYING [None]
  - DISCOMFORT [None]
  - PAIN [None]
  - PRODUCT QUALITY ISSUE [None]
  - UNEVALUABLE EVENT [None]
